FAERS Safety Report 21902455 (Version 2)
Quarter: 2023Q2

REPORT INFORMATION
  Report Type: Spontaneous
  Country: JP (occurrence: JP)
  Receive Date: 20230124
  Receipt Date: 20230411
  Transmission Date: 20230722
  Serious: Yes (Other)
  Sender: FDA-Public Use
  Company Number: JP-KYOWAKIRIN-2023AKK000566

PATIENT
  Age: 4 Decade
  Sex: Female

DRUGS (16)
  1. PEGFILGRASTIM [Suspect]
     Active Substance: PEGFILGRASTIM
     Indication: Colony stimulating factor therapy
     Dosage: 3.6 MILLIGRAM, Q3WK
     Route: 058
     Dates: start: 20220331, end: 20220902
  2. FLUOROURACIL [Suspect]
     Active Substance: FLUOROURACIL
     Indication: Breast cancer
     Dosage: 650 MILLIGRAM, Q3WK
     Route: 042
     Dates: start: 20220329, end: 20220601
  3. EPIRUBICIN HYDROCHLORIDE [Concomitant]
     Active Substance: EPIRUBICIN HYDROCHLORIDE
     Indication: Breast cancer
     Dosage: 130 MG, 1X/3 WEEKS
     Route: 041
     Dates: start: 20220329, end: 20220601
  4. CYCLOPHOSPHAMIDE [Concomitant]
     Active Substance: CYCLOPHOSPHAMIDE
     Indication: Breast cancer
     Dosage: 650 MG, 1X/3 WEEKS
     Route: 041
     Dates: start: 20220329, end: 20220831
  5. DOCETAXEL [Suspect]
     Active Substance: DOCETAXEL
     Indication: Breast cancer
     Dosage: 90 MG, 1X/3 WEEKS
     Route: 041
     Dates: start: 20220622, end: 20220831
  6. LEUPROLIDE ACETATE [Concomitant]
     Active Substance: LEUPROLIDE ACETATE
     Indication: Breast cancer
     Dosage: 3.75 MG, QD
     Route: 058
     Dates: start: 20220316
  7. OLANZAPINE [Concomitant]
     Active Substance: OLANZAPINE
     Indication: Chemotherapy side effect prophylaxis
     Dosage: 5 MG, 1X/3 WEEKS
     Route: 048
     Dates: start: 20220329, end: 20220603
  8. EMEND [Concomitant]
     Active Substance: APREPITANT
     Indication: Chemotherapy side effect prophylaxis
     Dosage: UNK UNK, 1X/3 WEEKS
     Route: 048
     Dates: start: 20220330, end: 20220904
  9. EMEND [Concomitant]
     Active Substance: APREPITANT
     Dosage: UNK, 1X/3 WEEKS
     Route: 048
     Dates: start: 20220329, end: 20220831
  10. DECADRON [Concomitant]
     Active Substance: DEXAMETHASONE
     Indication: Chemotherapy side effect prophylaxis
     Dosage: UNK, 1X/3 WEEKS
     Route: 048
     Dates: start: 20220330, end: 20220904
  11. PRIMPERAN [Concomitant]
     Active Substance: METOCLOPRAMIDE HYDROCHLORIDE
     Indication: Chemotherapy side effect prophylaxis
     Dosage: UNK, 1X/3 WEEKS
     Route: 048
     Dates: start: 20220330, end: 20220904
  12. FAMOTIDINE [Concomitant]
     Active Substance: FAMOTIDINE
     Indication: Chemotherapy side effect prophylaxis
     Dosage: UNK, 1X/3 WEEKS
     Route: 048
     Dates: start: 20220330, end: 20220904
  13. AROMASIN [Concomitant]
     Active Substance: EXEMESTANE
     Indication: Breast cancer
     Dosage: 25 MG, QD
     Route: 048
     Dates: start: 20220623
  14. ALOXI [Concomitant]
     Active Substance: PALONOSETRON HYDROCHLORIDE
     Indication: Chemotherapy side effect prophylaxis
     Dosage: UNK, 1X/3 WEEKS
     Route: 041
     Dates: start: 20220329, end: 20220831
  15. DEXAMETHASONE SODIUM PHOSPHATE [Suspect]
     Active Substance: DEXAMETHASONE SODIUM PHOSPHATE
     Indication: Chemotherapy side effect prophylaxis
     Dosage: UNK, 1X/3 WEEKS
     Route: 065
     Dates: start: 20220329, end: 20220331
  16. GASTER [Suspect]
     Active Substance: FAMOTIDINE
     Indication: Chemotherapy side effect prophylaxis
     Dosage: UNK, 1X/3 WEEKS
     Route: 065
     Dates: start: 20220329, end: 20220331

REACTIONS (1)
  - Interstitial lung disease [Recovered/Resolved]

NARRATIVE: CASE EVENT DATE: 20220914
